FAERS Safety Report 20991702 (Version 1)
Quarter: 2022Q2

REPORT INFORMATION
  Report Type: Spontaneous
  Country: US (occurrence: None)
  Receive Date: 20220621
  Receipt Date: 20220621
  Transmission Date: 20220720
  Serious: Yes (Hospitalization)
  Sender: FDA-Public Use
  Company Number: None

PATIENT
  Sex: Male

DRUGS (2)
  1. VYNDAMAX [Suspect]
     Active Substance: TAFAMIDIS
     Indication: Amyloidosis
     Dosage: FREQUENCY : AS DIRECTED;?
     Route: 048
     Dates: start: 20220503
  2. VIDAZA [Concomitant]
     Active Substance: AZACITIDINE

REACTIONS (2)
  - Surgery [None]
  - Intentional dose omission [None]
